FAERS Safety Report 17883966 (Version 1)
Quarter: 2020Q2

REPORT INFORMATION
  Report Type: Spontaneous
  Country: US (occurrence: US)
  Receive Date: 20200611
  Receipt Date: 20200611
  Transmission Date: 20200714
  Serious: No
  Sender: FDA-Public Use
  Company Number: US-MYLANLABS-2020M1055635

PATIENT
  Sex: Female
  Weight: 77 kg

DRUGS (2)
  1. LIDOCAINE PATCH [Suspect]
     Active Substance: LIDOCAINE
     Indication: BACK DISORDER
     Dosage: UNK
     Route: 003
  2. LIDOCAINE PATCH [Suspect]
     Active Substance: LIDOCAINE
     Indication: SPINAL STENOSIS

REACTIONS (5)
  - Wrong technique in product usage process [Unknown]
  - Application site pain [Unknown]
  - Product quality issue [Unknown]
  - Off label use [Recovered/Resolved]
  - Product adhesion issue [Unknown]
